FAERS Safety Report 9603029 (Version 1)
Quarter: 2013Q4

REPORT INFORMATION
  Report Type: Spontaneous
  Country: GB (occurrence: GB)
  Receive Date: 20131007
  Receipt Date: 20131007
  Transmission Date: 20140711
  Serious: Yes (Hospitalization)
  Sender: FDA-Public Use
  Company Number: GB-ROCHE-1284218

PATIENT
  Age: 12 Year
  Sex: Female

DRUGS (9)
  1. TOCILIZUMAB [Suspect]
     Indication: PRODUCT USED FOR UNKNOWN INDICATION
     Route: 065
  2. ANAKINRA [Suspect]
     Indication: PRODUCT USED FOR UNKNOWN INDICATION
     Route: 065
  3. METHOTREXATE [Suspect]
     Indication: PRODUCT USED FOR UNKNOWN INDICATION
     Route: 065
  4. PREDNISOLONE [Suspect]
     Indication: PRODUCT USED FOR UNKNOWN INDICATION
     Route: 065
  5. PREDNISOLONE [Suspect]
     Dosage: DOSE DECREASED TO 5 MG
     Route: 065
  6. PREDNISOLONE [Suspect]
     Route: 065
  7. PREDNISOLONE [Suspect]
     Route: 065
  8. CERVARIX [Suspect]
     Indication: PROPHYLAXIS
     Route: 065
     Dates: start: 201010, end: 201010
  9. METFORMIN [Concomitant]

REACTIONS (20)
  - Fatigue [Unknown]
  - Malaise [Unknown]
  - Hyperglycaemia [Unknown]
  - Immobile [Unknown]
  - Infection [Unknown]
  - Arthralgia [Unknown]
  - Juvenile idiopathic arthritis [Unknown]
  - Local swelling [Unknown]
  - Pain [Unknown]
  - Pericardial effusion [Unknown]
  - Somnolence [Unknown]
  - Pyrexia [Unknown]
  - Joint swelling [Unknown]
  - Fatigue [Unknown]
  - Tonsillitis [Unknown]
  - Weight decreased [Unknown]
  - Cough [Unknown]
  - Dyspnoea [Unknown]
  - Pruritus [Unknown]
  - Rash [Unknown]
